FAERS Safety Report 10022013 (Version 1)
Quarter: 2014Q1

REPORT INFORMATION
  Report Type: Spontaneous
  Country: US (occurrence: US)
  Receive Date: 20140319
  Receipt Date: 20140319
  Transmission Date: 20141002
  Serious: Yes (Other)
  Sender: FDA-Public Use
  Company Number: US-IAC JAPAN XML-USA-2014-0112156

PATIENT
  Age: 56 Year
  Sex: Female

DRUGS (5)
  1. BUTRANS [Suspect]
     Indication: BACK PAIN
     Dosage: 20 MCG/HR, WEEKLY
     Route: 062
     Dates: start: 20130119
  2. LASIX                              /00032601/ [Concomitant]
     Indication: SWELLING
     Dosage: 20 MG, DAILY
     Route: 048
  3. POTASSIUM [Concomitant]
     Indication: SUPPLEMENTATION THERAPY
     Dosage: 10 MEQ, DAILY
     Route: 048
  4. PROTONIX [Concomitant]
     Indication: GASTROINTESTINAL DISORDER
     Dosage: 40 MG, DAILY
     Route: 048
  5. ZANTAC [Concomitant]
     Indication: GASTROINTESTINAL DISORDER
     Dosage: 150 MG, DAILY
     Route: 048

REACTIONS (2)
  - Liver injury [Not Recovered/Not Resolved]
  - Oedema [Not Recovered/Not Resolved]
